FAERS Safety Report 12388262 (Version 1)
Quarter: 2016Q2

REPORT INFORMATION
  Report Type: Spontaneous
  Country: US (occurrence: None)
  Receive Date: 20160519
  Receipt Date: 20160519
  Transmission Date: 20160815
  Serious: No
  Sender: FDA-Public Use
  Company Number: None

PATIENT
  Sex: Male

DRUGS (2)
  1. METFORMIN, 850 MG [Suspect]
     Active Substance: METFORMIN HYDROCHLORIDE
     Dosage: 3 TABLET(S) THREE TIMES A DAY
  2. LIPITOR [Suspect]
     Active Substance: ATORVASTATIN CALCIUM

REACTIONS (6)
  - Diarrhoea [None]
  - Blood glucose fluctuation [None]
  - Therapy change [None]
  - Weight decreased [None]
  - Gastrointestinal disorder [None]
  - Vomiting [None]
